FAERS Safety Report 4827616-2 (Version None)
Quarter: 2005Q4

REPORT INFORMATION
  Report Type: 
  Country: None (occurrence: None)
  Receive Date: 20051110
  Receipt Date: 20051027
  Transmission Date: 20060501
  Serious: Yes (Death)
  Sender: FDA-Public Use
  Company Number: 2005S1010522

PATIENT
  Age: 40 Year
  Sex: Male

DRUGS (2)
  1. CLOZAPINE [Suspect]
     Dosage: 15 MG; QD, ORAL; 200 MG; HS; ORAL
     Route: 048
     Dates: start: 20011205, end: 20050901
  2. CLOZAPINE [Suspect]
     Dosage: 15 MG; QD, ORAL; 200 MG; HS; ORAL
     Route: 048
     Dates: start: 20011205, end: 20050901

REACTIONS (1)
  - COMPLETED SUICIDE [None]
